FAERS Safety Report 4812109-9 (Version None)
Quarter: 2005Q4

REPORT INFORMATION
  Report Type: 
  Country: None (occurrence: None)
  Receive Date: 20051028
  Receipt Date: 20040127
  Transmission Date: 20060501
  Serious: No
  Sender: FDA-Public Use
  Company Number: US-GLAXOSMITHKLINE-A0495801A

PATIENT
  Age: 78 Year
  Sex: Female

DRUGS (7)
  1. ADVAIR DISKUS 100/50 [Suspect]
     Indication: CHRONIC OBSTRUCTIVE PULMONARY DISEASE
     Dosage: 1PUFF TWICE PER DAY
     Route: 055
  2. SEREVENT [Suspect]
     Indication: ASTHMA
     Dosage: 1PUFF TWICE PER DAY
     Route: 055
  3. SYNTHROID [Concomitant]
  4. BLOOD PRESSURE MEDICATION [Concomitant]
  5. PRILOSEC [Concomitant]
  6. LEVOXYL [Concomitant]
  7. SINGULAIR [Concomitant]

REACTIONS (3)
  - DYSPHONIA [None]
  - ORAL MUCOSAL BLISTERING [None]
  - TONGUE BLISTERING [None]
